FAERS Safety Report 15033626 (Version 1)
Quarter: 2018Q2

REPORT INFORMATION
  Report Type: Spontaneous
  Country: US (occurrence: US)
  Receive Date: 20180619
  Receipt Date: 20180619
  Transmission Date: 20180711
  Serious: No
  Sender: FDA-Public Use
  Company Number: US-AMGEN-USASP2011028472

PATIENT
  Sex: Female

DRUGS (2)
  1. PEGASYS                            /01557901/ [Concomitant]
  2. NEUPOGEN [Suspect]
     Active Substance: FILGRASTIM
     Indication: NEUTROPENIA
     Dosage: UNK UNK, QWK

REACTIONS (2)
  - Immobile [Unknown]
  - Malaise [Unknown]
